FAERS Safety Report 6871896-9 (Version None)
Quarter: 2010Q3

REPORT INFORMATION
  Report Type: 
  Country: None (occurrence: None)
  Receive Date: 20100723
  Receipt Date: 20100715
  Transmission Date: 20110219
  Serious: Yes (Hospitalization)
  Sender: FDA-Public Use
  Company Number: US-JNJFOC-20100705121

PATIENT
  Sex: Female
  Weight: 86.18 kg

DRUGS (1)
  1. ORTHO EVRA [Suspect]
     Indication: CONTRACEPTION
     Route: 062

REACTIONS (4)
  - EXPIRED DRUG ADMINISTERED [None]
  - INTERVERTEBRAL DISC PROTRUSION [None]
  - PRODUCT QUALITY ISSUE [None]
  - WEIGHT INCREASED [None]
